FAERS Safety Report 16446853 (Version 3)
Quarter: 2020Q1

REPORT INFORMATION
  Report Type: Spontaneous
  Country: US (occurrence: US)
  Receive Date: 20190618
  Receipt Date: 20200204
  Transmission Date: 20200409
  Serious: Yes (Hospitalization, Other)
  Sender: FDA-Public Use
  Company Number: US-PFIZER INC-2019253029

PATIENT
  Age: 48 Year
  Sex: Female
  Weight: 75.28 kg

DRUGS (2)
  1. XELJANZ XR [Suspect]
     Active Substance: TOFACITINIB CITRATE
     Indication: PSORIATIC ARTHROPATHY
     Dosage: 11 MG, 1X/DAY
     Dates: start: 20190325
  2. METHOTREXATE. [Concomitant]
     Active Substance: METHOTREXATE
     Indication: CROHN^S DISEASE
     Dosage: UNK
     Dates: start: 20190310

REACTIONS (7)
  - Anal abscess [Recovered/Resolved]
  - Lymphadenopathy [Unknown]
  - Viral infection [Recovered/Resolved]
  - Pneumonia aspiration [Unknown]
  - Oropharyngeal pain [Recovered/Resolved]
  - Uvulitis [Unknown]
  - Crohn^s disease [Recovered/Resolved]

NARRATIVE: CASE EVENT DATE: 201904
